FAERS Safety Report 7655503-3 (Version None)
Quarter: 2011Q3

REPORT INFORMATION
  Report Type: 
  Country: None (occurrence: None)
  Receive Date: 20110804
  Receipt Date: 20110721
  Transmission Date: 20111222
  Serious: Yes (Death, Other)
  Sender: FDA-Public Use
  Company Number: NZ-RANBAXY-2011RR-46402

PATIENT
  Age: 15 Year
  Sex: Female

DRUGS (3)
  1. MIDAZOLAM HCL [Suspect]
     Indication: SEDATIVE THERAPY
  2. MIDAZOLAM HCL [Suspect]
     Indication: PREMEDICATION
     Route: 065
  3. REMIFENTANIL [Suspect]
     Indication: SEDATIVE THERAPY
     Route: 065

REACTIONS (2)
  - CARDIAC ARREST [None]
  - PULMONARY HYPERTENSIVE CRISIS [None]
